FAERS Safety Report 23777789 (Version 1)
Quarter: 2024Q2

REPORT INFORMATION
  Report Type: Spontaneous
  Country: US (occurrence: US)
  Receive Date: 20240424
  Receipt Date: 20240424
  Transmission Date: 20240716
  Serious: Yes (Hospitalization)
  Sender: FDA-Public Use
  Company Number: US-GLANDPHARMA-US-2024GLNLIT00050

PATIENT
  Age: 25 Year
  Sex: Male

DRUGS (9)
  1. ENOXAPARIN SODIUM [Suspect]
     Active Substance: ENOXAPARIN SODIUM
     Indication: Product used for unknown indication
     Dosage: (A TOTAL DOSE OF 2480MG)  31 SYRINGES
  2. DULOXETINE [Concomitant]
     Active Substance: DULOXETINE
     Indication: Product used for unknown indication
     Route: 065
  3. BUSPIRONE [Concomitant]
     Active Substance: BUSPIRONE HYDROCHLORIDE
     Indication: Product used for unknown indication
     Route: 065
  4. ASPIRIN [Concomitant]
     Active Substance: ASPIRIN
     Indication: Product used for unknown indication
     Route: 065
  5. MIRTAZAPINE [Concomitant]
     Active Substance: MIRTAZAPINE
     Indication: Product used for unknown indication
     Route: 065
  6. PROPRANOLOL [Concomitant]
     Active Substance: PROPRANOLOL HYDROCHLORIDE
     Indication: Product used for unknown indication
     Route: 065
  7. EMTRICITABINE\TENOFOVIR DISOPROXIL [Concomitant]
     Active Substance: EMTRICITABINE\TENOFOVIR DISOPROXIL
     Indication: Product used for unknown indication
     Route: 065
  8. ATORVASTATIN [Concomitant]
     Active Substance: ATORVASTATIN
     Indication: Product used for unknown indication
     Route: 065
  9. DEXTROAMPHETAMINE [Concomitant]
     Active Substance: DEXTROAMPHETAMINE
     Indication: Product used for unknown indication
     Route: 065

REACTIONS (6)
  - Skin laceration [Unknown]
  - Injection site haemorrhage [Unknown]
  - Haemorrhage [Unknown]
  - Activated partial thromboplastin time prolonged [Recovered/Resolved]
  - Abdominal wall haematoma [Unknown]
  - Intentional overdose [Unknown]
